FAERS Safety Report 19098117 (Version 1)
Quarter: 2021Q2

REPORT INFORMATION
  Report Type: Spontaneous
  Country: RU (occurrence: RU)
  Receive Date: 20210406
  Receipt Date: 20210406
  Transmission Date: 20210717
  Serious: Yes (Hospitalization)
  Sender: FDA-Public Use
  Company Number: RU-BAYER-2021-112991

PATIENT
  Age: 13 Year
  Sex: Male
  Weight: 53 kg

DRUGS (3)
  1. LORATADINE. [Suspect]
     Active Substance: LORATADINE
  2. AZITHROMYCIN ANHYDROUS. [Concomitant]
     Active Substance: AZITHROMYCIN ANHYDROUS
  3. PARACETAMOL [Concomitant]
     Active Substance: ACETAMINOPHEN

REACTIONS (5)
  - Chest pain [None]
  - Vomiting [None]
  - Diarrhoea [None]
  - Dyspnoea [None]
  - Pyrexia [None]
